FAERS Safety Report 11969084 (Version 1)
Quarter: 2016Q1

REPORT INFORMATION
  Report Type: Spontaneous
  Country: US (occurrence: None)
  Receive Date: 20160127
  Receipt Date: 20160127
  Transmission Date: 20160526
  Serious: Yes (Life-Threatening, Hospitalization, Disabling)
  Sender: FDA-Public Use
  Company Number: None

PATIENT
  Age: 51 Year
  Sex: Female
  Weight: 81.65 kg

DRUGS (4)
  1. HEPARIN [Suspect]
     Active Substance: HEPARIN SODIUM
     Indication: IMMOBILE
     Dosage: INTO A VEIN
  2. HEPARIN [Suspect]
     Active Substance: HEPARIN SODIUM
     Indication: SEDATION
     Dosage: INTO A VEIN
  3. ASPIRIN. [Concomitant]
     Active Substance: ASPIRIN
  4. COUMADIN [Concomitant]
     Active Substance: WARFARIN SODIUM

REACTIONS (3)
  - Infusion site extravasation [None]
  - Heparin-induced thrombocytopenia [None]
  - Compartment syndrome [None]

NARRATIVE: CASE EVENT DATE: 20140404
